FAERS Safety Report 5739603-0 (Version None)
Quarter: 2008Q2

REPORT INFORMATION
  Report Type: 
  Country: None (occurrence: None)
  Receive Date: 20080515
  Receipt Date: 20080505
  Transmission Date: 20081010
  Serious: Yes (Hospitalization)
  Sender: FDA-Public Use
  Company Number: DE-GENENTECH-261014

PATIENT
  Age: 65 Year
  Sex: Male

DRUGS (4)
  1. RITUXIMAB [Suspect]
     Indication: DRUG USE FOR UNKNOWN INDICATION
     Dates: start: 20070104
  2. TOCILIZUMAB [Suspect]
     Indication: DRUG USE FOR UNKNOWN INDICATION
  3. PREDNISONE TAB [Suspect]
     Indication: DRUG USE FOR UNKNOWN INDICATION
  4. METHOTREXATE [Suspect]
     Indication: DRUG USE FOR UNKNOWN INDICATION
     Dosage: 20 MG, 1/WEEK
     Dates: start: 20050601

REACTIONS (1)
  - ASPERGILLOSIS [None]
